FAERS Safety Report 6545827-5 (Version None)
Quarter: 2010Q1

REPORT INFORMATION
  Report Type: 
  Country: None (occurrence: None)
  Receive Date: 20100121
  Receipt Date: 20100118
  Transmission Date: 20100710
  Serious: Yes (Hospitalization, Other)
  Sender: FDA-Public Use
  Company Number: US-ELI_LILLY_AND_COMPANY-US201001003692

PATIENT
  Sex: Female
  Weight: 112.2 kg

DRUGS (5)
  1. BYETTA [Suspect]
     Indication: TYPE 2 DIABETES MELLITUS
     Dosage: 5 UG, 2/D
     Dates: start: 20090901, end: 20091101
  2. BYETTA [Suspect]
     Dosage: 10 UG, 2/D
     Dates: start: 20091101, end: 20091208
  3. BYETTA [Suspect]
     Dosage: 10 UG, 2/D
     Dates: start: 20091214
  4. METFORMIN HCL [Concomitant]
     Dosage: 1000 MG, DAILY (1/D)
     Route: 048
  5. MICARDIS [Concomitant]
     Dosage: 80 MG, DAILY (1/D)
     Route: 048

REACTIONS (9)
  - CRANIAL NERVE INJURY [None]
  - DYSARTHRIA [None]
  - DYSPHAGIA [None]
  - HYPERTENSION [None]
  - INTERVERTEBRAL DISC PROTRUSION [None]
  - SCIATICA [None]
  - TONGUE DISORDER [None]
  - TRANSIENT ISCHAEMIC ATTACK [None]
  - WEIGHT DECREASED [None]
